FAERS Safety Report 7626165-6 (Version None)
Quarter: 2011Q3

REPORT INFORMATION
  Report Type: 
  Country: None (occurrence: None)
  Receive Date: 20110721
  Receipt Date: 20110706
  Transmission Date: 20111222
  Serious: Yes (Hospitalization, Other)
  Sender: FDA-Public Use
  Company Number: PHHY2011FR50614

PATIENT
  Sex: Male

DRUGS (15)
  1. ANESTHETICS NOS [Concomitant]
     Dosage: UNK UKN, UNK
  2. FOLIC ACID [Concomitant]
     Dosage: 1 DF, TID
     Route: 048
  3. LOXAPINE HCL [Suspect]
     Dosage: UNK UKN, UNK
  4. NEUROLEPTIC DRUGS [Suspect]
     Indication: DEPRESSION
     Dosage: UNK UKN, UNK
  5. TRANSIPEG [Concomitant]
     Dosage: 2 DF, BID
  6. TIAPRIDAL [Suspect]
     Dosage: UNK UKN, UNK
  7. MANIACO-DEPRESSIVE TREATMENT [Suspect]
     Dosage: UNK UKN, UNK
  8. FERROUS SULFATE TAB [Concomitant]
     Dosage: 2 DF, TID
     Route: 048
  9. ATORVASTATIN CALCIUM [Concomitant]
     Dosage: UNK UKN, UNK
  10. ACETAMINOPHEN [Concomitant]
     Dosage: 2 DF, TID
     Route: 048
  11. CIPROFLOXACIN [Concomitant]
     Dosage: 200 MG, BID
  12. RAMIPRIL [Concomitant]
     Dosage: UNK UKN, UNK
  13. TEGRETOL [Suspect]
     Indication: MENTAL DISORDER
     Dosage: 200 MG, TID
     Dates: start: 20020527
  14. TRANXENE [Concomitant]
     Dosage: 20 MG, 50 MG, 50 MG
  15. FERROUS SULFATE TAB [Concomitant]
     Dosage: 5000 IU, QD
     Route: 058

REACTIONS (17)
  - DYSGRAPHIA [None]
  - MUSCULOSKELETAL STIFFNESS [None]
  - LIMB DEFORMITY [None]
  - BLADDER SPHINCTER ATONY [None]
  - PARKINSONISM [None]
  - AKINESIA [None]
  - MUSCLE RIGIDITY [None]
  - MUSCLE CONTRACTURE [None]
  - BRADYKINESIA [None]
  - GAIT DISTURBANCE [None]
  - MOTOR DYSFUNCTION [None]
  - URINARY INCONTINENCE [None]
  - ASPARTATE AMINOTRANSFERASE INCREASED [None]
  - EXTRAPYRAMIDAL DISORDER [None]
  - FOOT DEFORMITY [None]
  - ALANINE AMINOTRANSFERASE INCREASED [None]
  - TREMOR [None]
